FAERS Safety Report 7774641-8 (Version None)
Quarter: 2011Q3

REPORT INFORMATION
  Report Type: 
  Country: None (occurrence: None)
  Receive Date: 20110923
  Receipt Date: 20110916
  Transmission Date: 20111222
  Serious: Yes (Death)
  Sender: FDA-Public Use
  Company Number: JP-ROCHE-803917

PATIENT
  Sex: Female
  Weight: 44 kg

DRUGS (5)
  1. AVASTIN [Suspect]
     Indication: COLON CANCER RECURRENT
     Route: 041
     Dates: end: 20100331
  2. OXALIPLATIN [Concomitant]
     Route: 041
  3. EFUDEX [Concomitant]
     Route: 040
  4. LEUCOVORIN CALCIUM [Concomitant]
     Route: 041
  5. EFUDEX [Concomitant]
     Route: 041

REACTIONS (1)
  - HAEMORRHAGIC CEREBRAL INFARCTION [None]
